FAERS Safety Report 6381674-5 (Version None)
Quarter: 2009Q3

REPORT INFORMATION
  Report Type: 
  Country: None (occurrence: None)
  Receive Date: 20090930
  Receipt Date: 20090917
  Transmission Date: 20100115
  Serious: Yes (Other)
  Sender: FDA-Public Use
  Company Number: PHEH2009US11293

PATIENT
  Sex: Female

DRUGS (3)
  1. TEKTURNA [Suspect]
  2. AZOR (OLMESARTAN MEDOXOMIL/ AMLODIPINE BESILATE) [Concomitant]
  3. CALCIUM CHANNEL BLOCKERS [Concomitant]

REACTIONS (2)
  - RENAL DISORDER [None]
  - SWELLING FACE [None]
